FAERS Safety Report 10860937 (Version 1)
Quarter: 2015Q1

REPORT INFORMATION
  Report Type: Spontaneous
  Country: FR (occurrence: FR)
  Receive Date: 20150224
  Receipt Date: 20150224
  Transmission Date: 20150721
  Serious: Yes (Hospitalization)
  Sender: FDA-Public Use
  Company Number: FR-AMGEN-FRASP2015016762

PATIENT
  Age: 52 Year
  Sex: Female

DRUGS (2)
  1. ENBREL [Suspect]
     Active Substance: ETANERCEPT
     Indication: PRODUCT USED FOR UNKNOWN INDICATION
     Dosage: 1 DF, WEEKLY
     Route: 058
     Dates: start: 20150103, end: 201501
  2. ENBREL [Suspect]
     Active Substance: ETANERCEPT
     Dosage: 1 DF, WEEKLY
     Route: 058
     Dates: start: 20150118, end: 20150124

REACTIONS (9)
  - Face oedema [Recovered/Resolved]
  - Pruritus [Recovered/Resolved]
  - Hypertension [Recovered/Resolved]
  - Sensation of foreign body [Recovered/Resolved]
  - Dermatitis [Recovered/Resolved]
  - Injection site erythema [Recovered/Resolved]
  - Abdominal pain upper [Recovered/Resolved]
  - Erythema [Recovered/Resolved]
  - Skin plaque [Recovered/Resolved]

NARRATIVE: CASE EVENT DATE: 20150106
